FAERS Safety Report 9448052 (Version 1)
Quarter: 2013Q3

REPORT INFORMATION
  Report Type: Report from Study
  Country: US (occurrence: US)
  Receive Date: 20130808
  Receipt Date: 20130808
  Transmission Date: 20140515
  Serious: Yes (Hospitalization)
  Sender: FDA-Public Use
  Company Number: US-SANOFI-AVENTIS-2013SA079486

PATIENT
  Age: 81 Year
  Sex: Female
  Weight: 68 kg

DRUGS (9)
  1. JEVTANA [Suspect]
     Indication: GASTRIC CANCER
     Route: 042
     Dates: start: 20130107
  2. ONDANSETRON [Concomitant]
     Route: 048
  3. ATIVAN [Concomitant]
     Route: 048
  4. ASPIRIN [Concomitant]
     Route: 048
  5. PANTOPRAZOLE [Concomitant]
  6. DICLOFENAC SODIUM [Concomitant]
     Route: 048
  7. AMITRIPTYLINE [Concomitant]
     Route: 048
  8. SIMVASTATIN [Concomitant]
     Route: 048
  9. PREDNISONE [Concomitant]
     Route: 048

REACTIONS (1)
  - Cardiac failure [Unknown]
